FAERS Safety Report 8798769 (Version 2)
Quarter: 2012Q4

REPORT INFORMATION
  Report Type: 
  Country: US (occurrence: US)
  Receive Date: 20120920
  Receipt Date: 20121015
  Transmission Date: 20130627
  Serious: Yes (Other)
  Sender: FDA-Public Use
  Company Number: PHEH2012US018178

PATIENT
  Sex: Female

DRUGS (3)
  1. RECLAST [Suspect]
     Dosage: UNK UKN, UNK
     Route: 042
  2. CALTRATE [Concomitant]
  3. CENTRUM SILVER [Concomitant]

REACTIONS (2)
  - Herpes zoster [Unknown]
  - Dermatosis [Unknown]
